FAERS Safety Report 17071886 (Version 1)
Quarter: 2019Q4

REPORT INFORMATION
  Report Type: Spontaneous
  Country: US (occurrence: US)
  Receive Date: 20191022
  Receipt Date: 20191022
  Transmission Date: 20200122
  Serious: No
  Sender: FDA-Public Use
  Company Number: None

PATIENT
  Age: 29 Year
  Sex: Female

DRUGS (1)
  1. TREMFYA [Suspect]
     Active Substance: GUSELKUMAB
     Indication: PSORIASIS
     Dosage: OTHER
     Route: 058
     Dates: start: 20190819

REACTIONS (2)
  - Therapy cessation [None]
  - Product prescribing error [None]

NARRATIVE: CASE EVENT DATE: 20190918
